FAERS Safety Report 8133941-2 (Version None)
Quarter: 2012Q1

REPORT INFORMATION
  Report Type: 
  Country: None (occurrence: None)
  Receive Date: 20120213
  Receipt Date: 20120201
  Transmission Date: 20120608
  Serious: Yes (Other)
  Sender: FDA-Public Use
  Company Number: JP-ASTRAZENECA-2012SE08389

PATIENT
  Age: 78 Year
  Sex: Male

DRUGS (7)
  1. SEROQUEL [Suspect]
     Route: 050
     Dates: start: 20110116, end: 20120131
  2. GANATON [Suspect]
     Route: 050
  3. AMOBAN [Concomitant]
  4. REQUIP [Concomitant]
  5. GLYCERIN [Concomitant]
  6. LAXOBERON [Concomitant]
     Route: 048
  7. CARBIDOPA AND LEVODOPA [Concomitant]

REACTIONS (1)
  - LABORATORY TEST ABNORMAL [None]
